FAERS Safety Report 23213967 (Version 4)
Quarter: 2025Q1

REPORT INFORMATION
  Report Type: Spontaneous
  Country: JP (occurrence: JP)
  Receive Date: 20231121
  Receipt Date: 20250205
  Transmission Date: 20250408
  Serious: Yes (Hospitalization, Disabling, Other)
  Sender: MERCK
  Company Number: JP-MSD-M2023-49351

PATIENT
  Age: 60 Year
  Sex: Female
  Weight: 46 kg

DRUGS (11)
  1. KEYTRUDA [Suspect]
     Active Substance: PEMBROLIZUMAB
     Indication: Triple negative breast cancer
     Dosage: 200 MILLIGRAM, Q3W
     Route: 041
     Dates: start: 20230223, end: 202309
  2. KEYTRUDA [Suspect]
     Active Substance: PEMBROLIZUMAB
     Indication: PD-L1 positive cancer
  3. CARBOPLATIN [Suspect]
     Active Substance: CARBOPLATIN
     Indication: Triple negative breast cancer
     Route: 065
     Dates: start: 20230223, end: 2023
  4. CARBOPLATIN [Suspect]
     Active Substance: CARBOPLATIN
     Indication: PD-L1 positive cancer
  5. PACLITAXEL [Suspect]
     Active Substance: PACLITAXEL
     Indication: Triple negative breast cancer
     Route: 065
     Dates: start: 20230223, end: 2023
  6. PACLITAXEL [Suspect]
     Active Substance: PACLITAXEL
     Indication: PD-L1 positive cancer
  7. EPIRUBICIN [Concomitant]
     Active Substance: EPIRUBICIN
     Indication: Triple negative breast cancer
     Dosage: 90 MILLIGRAM/SQ. METER, Q3W
     Route: 041
     Dates: start: 2023, end: 202309
  8. EPIRUBICIN [Concomitant]
     Active Substance: EPIRUBICIN
     Indication: PD-L1 positive cancer
  9. CYCLOPHOSPHAMIDE [Concomitant]
     Active Substance: CYCLOPHOSPHAMIDE
     Indication: Triple negative breast cancer
     Dosage: 600 MILLIGRAM/SQ. METER, Q3W
     Route: 041
     Dates: start: 2023, end: 202309
  10. CYCLOPHOSPHAMIDE [Concomitant]
     Active Substance: CYCLOPHOSPHAMIDE
     Indication: PD-L1 positive cancer
  11. TOKISHAKUYAKUSAN [ALISMA PLANTAGO-AQUATICA SUBSP. ORIENTALE TUBER;ANGE [Concomitant]
     Route: 065

REACTIONS (3)
  - Adrenocorticotropic hormone deficiency [Unknown]
  - Adrenocortical insufficiency acute [Recovered/Resolved]
  - Immune-mediated adrenal insufficiency [Recovered/Resolved]

NARRATIVE: CASE EVENT DATE: 20231110
